FAERS Safety Report 10773596 (Version 2)
Quarter: 2016Q1

REPORT INFORMATION
  Report Type: Other
  Country: US (occurrence: US)
  Receive Date: 20150208
  Receipt Date: 20160219
  Transmission Date: 20160525
  Serious: No
  Sender: FDA-Public Use
  Company Number: US-ACORDA-ACO_107551_2014

PATIENT
  Sex: Female

DRUGS (2)
  1. AMPYRA [Suspect]
     Active Substance: DALFAMPRIDINE
     Indication: BALANCE DISORDER
     Dosage: UNK
     Route: 065
     Dates: start: 20121106, end: 20130120
  2. AMPYRA [Suspect]
     Active Substance: DALFAMPRIDINE
     Dosage: 10 MG, Q 12 HRS
     Route: 048
     Dates: start: 20141101

REACTIONS (9)
  - Feeling abnormal [Unknown]
  - Rocky mountain spotted fever [Unknown]
  - Asthenia [Unknown]
  - Off label use [Unknown]
  - Dizziness [Unknown]
  - Insomnia [Unknown]
  - Balance disorder [Unknown]
  - Balance disorder [Recovered/Resolved]
  - Drug ineffective [Unknown]
